FAERS Safety Report 13028127 (Version 2)
Quarter: 2016Q4

REPORT INFORMATION
  Report Type: Spontaneous
  Country: BR (occurrence: BR)
  Receive Date: 20161214
  Receipt Date: 20161220
  Transmission Date: 20170207
  Serious: Yes (Other)
  Sender: FDA-Public Use
  Company Number: BR-JNJFOC-20161209991

PATIENT
  Sex: Male
  Weight: 70 kg

DRUGS (3)
  1. CONCERTA [Suspect]
     Active Substance: METHYLPHENIDATE HYDROCHLORIDE
     Indication: ATTENTION DEFICIT/HYPERACTIVITY DISORDER
     Dosage: BY MORNING AND ANOTHER AT 3:00PM (LOCAL TIME).
     Route: 065
  2. PONDERA [Concomitant]
     Active Substance: PAROXETINE HYDROCHLORIDE
     Route: 065
  3. CONCERTA [Suspect]
     Active Substance: METHYLPHENIDATE HYDROCHLORIDE
     Indication: ATTENTION DEFICIT/HYPERACTIVITY DISORDER
     Route: 065

REACTIONS (2)
  - Road traffic accident [Recovered/Resolved]
  - Disturbance in attention [Recovered/Resolved]
